FAERS Safety Report 5060519-X (Version None)
Quarter: 2006Q2

REPORT INFORMATION
  Report Type: 
  Country: None (occurrence: None)
  Receive Date: 20060630
  Receipt Date: 20051129
  Transmission Date: 20061013
  Serious: Yes (Hospitalization, Other)
  Sender: FDA-Public Use
  Company Number: VISP-PR-0511S-0600

PATIENT
  Age: 74 Year
  Sex: Male
  Weight: 144.6 kg

DRUGS (11)
  1. VISIPAQUE [Suspect]
     Indication: DRUG USE FOR UNKNOWN INDICATION
     Dosage: , SINGLE DOSE, I.A.
     Dates: start: 20050201, end: 20050201
  2. CLEVELOX (CLEVIDIPINE) (CLEVIDIPINE) [Concomitant]
  3. LOTREL (BENAZEPRIL HYDROCHLORIDE, AMPLODIPINE) [Concomitant]
  4. HYTRIN [Concomitant]
  5. LIPITOR [Concomitant]
  6. PROSCAR [Concomitant]
  7. ASPIRIN [Concomitant]
  8. DIPYRIDAMOLE [Concomitant]
  9. ALLOPURINOL [Concomitant]
  10. HEPARIN [Concomitant]
  11. METOPROLOL [Concomitant]

REACTIONS (1)
  - RENAL FAILURE ACUTE [None]
